FAERS Safety Report 11925155 (Version 3)
Quarter: 2016Q1

REPORT INFORMATION
  Report Type: Spontaneous
  Country: JP (occurrence: JP)
  Receive Date: 20160118
  Receipt Date: 20160321
  Transmission Date: 20160526
  Serious: Yes (Hospitalization)
  Sender: FDA-Public Use
  Company Number: JP-ELI_LILLY_AND_COMPANY-JP201601005821

PATIENT
  Age: 50 Year
  Sex: Male
  Weight: 73 kg

DRUGS (20)
  1. PREDNISOLONE. [Suspect]
     Active Substance: PREDNISOLONE
     Indication: RHEUMATOID ARTHRITIS
     Dosage: 2 MG, QD
     Route: 048
     Dates: start: 20130907
  2. CHOLECALCIFEROL [Suspect]
     Active Substance: CHOLECALCIFEROL
     Indication: VITAMIN SUPPLEMENTATION
     Dosage: 2 DF, QD
     Route: 048
     Dates: start: 20140214
  3. ENALAPRIL [Suspect]
     Active Substance: ENALAPRIL
     Indication: HYPERTENSION
     Dosage: 5 MG, QD
     Route: 048
     Dates: start: 20150715
  4. PRASUGREL HYDROCHLORIDE [Suspect]
     Active Substance: PRASUGREL HYDROCHLORIDE
     Indication: PROPHYLAXIS
     Dosage: 3.75 MG, QD
     Route: 048
     Dates: start: 20150715
  5. MICAMLO [Suspect]
     Active Substance: AMLODIPINE BESYLATE\TELMISARTAN
     Indication: HYPERTENSION
     Dosage: 1 DF, QD
     Route: 048
     Dates: start: 20150317
  6. CHOLECALCIFEROL [Suspect]
     Active Substance: CHOLECALCIFEROL
     Indication: MINERAL SUPPLEMENTATION
     Dosage: UNK
  7. FUROZIN [Suspect]
     Active Substance: CARPRONIUM CHLORIDE
     Indication: ALOPECIA AREATA
     Route: 062
     Dates: start: 20150826
  8. FOLIAMIN [Suspect]
     Active Substance: FOLIC ACID
     Indication: PROPHYLAXIS
     Dosage: 5 MG, WEEKLY (1/W)
     Route: 048
     Dates: start: 20151024
  9. AZULFIDINE [Suspect]
     Active Substance: SULFASALAZINE
     Indication: RHEUMATOID ARTHRITIS
     Dosage: 500 MG, QD
     Route: 048
     Dates: start: 20151016
  10. LOXOPROFEN [Suspect]
     Active Substance: LOXOPROFEN
     Indication: RHEUMATOID ARTHRITIS
     Dosage: 60 MG, PRN
     Route: 048
     Dates: start: 20150915
  11. TAKEPRON [Suspect]
     Active Substance: LANSOPRAZOLE
     Indication: GASTRITIS PROPHYLAXIS
     Dosage: 15 MG, QD
     Route: 048
     Dates: start: 20120215
  12. REBAMIPIDE [Suspect]
     Active Substance: REBAMIPIDE
     Indication: PROPHYLAXIS
     Dosage: 100 MG, PRN
     Route: 048
     Dates: start: 20120824
  13. NATRIX [Suspect]
     Active Substance: INDAPAMIDE
     Indication: HYPERTENSION
     Dosage: 1 MG, QD
     Route: 048
     Dates: start: 20150317
  14. URSO [Suspect]
     Active Substance: URSODIOL
     Indication: ASPARTATE AMINOTRANSFERASE INCREASED
     Dosage: 300 MG, QD
     Route: 048
     Dates: start: 20150915
  15. RIMATIL [Suspect]
     Active Substance: BUCILLAMINE
     Indication: RHEUMATOID ARTHRITIS
     Dosage: 100 MG, QD
     Route: 048
     Dates: start: 20151016
  16. URSO [Suspect]
     Active Substance: URSODIOL
     Indication: ALANINE AMINOTRANSFERASE INCREASED
     Dosage: UNK
  17. DENOSUMAB [Suspect]
     Active Substance: DENOSUMAB
     Indication: RHEUMATOID ARTHRITIS
     Dosage: 60 MG, OTHER
     Route: 058
     Dates: start: 20140307
  18. METOLATE [Suspect]
     Active Substance: METHOTREXATE
     Indication: RHEUMATOID ARTHRITIS
     Dosage: 6 MG, WEEKLY (1/W)
     Route: 048
     Dates: start: 20151021
  19. BAYASPIRIN [Suspect]
     Active Substance: ASPIRIN
     Indication: PROPHYLAXIS
     Dosage: 100 MG, QD
     Route: 048
     Dates: start: 20150715
  20. CRESTOR [Suspect]
     Active Substance: ROSUVASTATIN CALCIUM
     Indication: PROPHYLAXIS
     Dosage: 5 MG, QD
     Route: 048
     Dates: start: 20150715

REACTIONS (1)
  - Diverticulitis [Recovered/Resolved]

NARRATIVE: CASE EVENT DATE: 20151225
